FAERS Safety Report 11732413 (Version 1)
Quarter: 2015Q4

REPORT INFORMATION
  Report Type: Spontaneous
  Country: US (occurrence: US)
  Receive Date: 20151110
  Receipt Date: 20151110
  Transmission Date: 20160304
  Serious: No
  Sender: FDA-Public Use
  Company Number: US-ELI_LILLY_AND_COMPANY-US201112003393

PATIENT
  Age: 64 Year
  Sex: Female

DRUGS (2)
  1. FORTEO [Suspect]
     Active Substance: TERIPARATIDE
     Indication: OSTEOPOROSIS
     Dosage: 20 UG, QD
  2. FORTEO [Suspect]
     Active Substance: TERIPARATIDE
     Dosage: 20 UG, QD
     Dates: end: 201204

REACTIONS (10)
  - Oedema peripheral [Unknown]
  - Nausea [Unknown]
  - Uterine malposition [Unknown]
  - Poor peripheral circulation [Unknown]
  - Mass [Unknown]
  - Vomiting [Unknown]
  - Intentional product misuse [Unknown]
  - Chest pain [Unknown]
  - Bladder malposition acquired [Unknown]
  - Gastrooesophageal reflux disease [Unknown]

NARRATIVE: CASE EVENT DATE: 201204
